FAERS Safety Report 23376282 (Version 2)
Quarter: 2024Q1

REPORT INFORMATION
  Report Type: Report from Study
  Country: US (occurrence: US)
  Receive Date: 20240108
  Receipt Date: 20240111
  Transmission Date: 20240410
  Serious: Yes (Death)
  Sender: FDA-Public Use
  Company Number: US-ABBVIE-5575050

PATIENT
  Age: 77 Year
  Sex: Female

DRUGS (2)
  1. DUOPA [Suspect]
     Active Substance: CARBIDOPA\LEVODOPA
     Indication: Parkinson^s disease
     Dosage: MORNING DOSE: 6ML (1-14.5ML), CONTINUOUS DOSE: 2.3 ML/HR (0-2.7ML/HR), EXTRA DOSE: 1.5ML.
     Route: 050
     Dates: start: 20210715
  2. DUOPA [Suspect]
     Active Substance: CARBIDOPA\LEVODOPA
     Dosage: MORNING DOSE: 6ML (1-14.5ML), CONTINUOUS DOSE: 2.3 ML/HR (0-2.7ML/HR), EXTRA DOSE: 1.5ML.?FREQUEN...
     Route: 050
     Dates: start: 202206

REACTIONS (1)
  - Death [Fatal]

NARRATIVE: CASE EVENT DATE: 20240105
